FAERS Safety Report 25493643 (Version 1)
Quarter: 2025Q2

REPORT INFORMATION
  Report Type: Spontaneous
  Country: US (occurrence: None)
  Receive Date: 20250627
  Receipt Date: 20250627
  Transmission Date: 20250716
  Serious: Yes (Hospitalization)
  Sender: FDA-CTU
  Company Number: None

PATIENT
  Age: 76 Year
  Sex: Male

DRUGS (17)
  1. ENVARSUS XR [Suspect]
     Active Substance: TACROLIMUS
     Indication: Lung disorder
     Dosage: FREQUENCY : DAILY;?
     Route: 048
     Dates: start: 20241225
  2. MYCOPHENOLIC ACID [Suspect]
     Active Substance: MYCOPHENOLIC ACID
     Indication: Lung transplant
     Dosage: FREQUENCY : TWICE A DAY;?
     Route: 048
     Dates: start: 20241211
  3. AZITHROMYCIN ANHYDROUS [Concomitant]
     Active Substance: AZITHROMYCIN ANHYDROUS
     Dates: start: 20240723
  4. CIPROFLOXACIN [Concomitant]
     Active Substance: CIPROFLOXACIN
     Dates: start: 20250611
  5. FAMCICLOVIR [Concomitant]
     Active Substance: FAMCICLOVIR
     Dates: start: 20241211
  6. Gemtesa 75mg [Concomitant]
     Dates: start: 20250207
  7. Mag-Oxide 400mg [Concomitant]
     Dates: start: 20241211
  8. NYSTATIN [Concomitant]
     Active Substance: NYSTATIN
     Dates: start: 20250606
  9. K PHOS NEUTRAL [Concomitant]
     Active Substance: POTASSIUM PHOSPHATE, MONOBASIC\SODIUM PHOSPHATE, DIBASIC, ANHYDROUS\SODIUM PHOSPHATE, MONOBASIC, MON
     Dates: start: 20250211
  10. PREDNISONE [Concomitant]
     Active Substance: PREDNISONE
     Dates: start: 20230114
  11. PREVYMIS [Concomitant]
     Active Substance: LETERMOVIR
     Dates: start: 20250114
  12. QVAR REDIHALER [Concomitant]
     Active Substance: BECLOMETHASONE DIPROPIONATE
     Dates: start: 20250429
  13. RIBAVIRIN [Concomitant]
     Active Substance: RIBAVIRIN
     Dates: start: 20250118
  14. Sulfamethoxazole/Trimethoprim 400/80 [Concomitant]
     Dates: start: 20240723
  15. Tamsulosin 0.4 [Concomitant]
     Dates: start: 20250419
  16. ALBUTEROL SULFATE [Concomitant]
     Active Substance: ALBUTEROL SULFATE
     Dates: start: 20250214
  17. CIPROFLOXACIN [Suspect]
     Active Substance: CIPROFLOXACIN

REACTIONS (4)
  - Malaise [None]
  - Viral infection [None]
  - Pulmonary thrombosis [None]
  - Diarrhoea [None]
